FAERS Safety Report 24579698 (Version 1)
Quarter: 2024Q4

REPORT INFORMATION
  Report Type: Spontaneous
  Country: US (occurrence: None)
  Receive Date: 20241104
  Receipt Date: 20241104
  Transmission Date: 20250115
  Serious: Yes (Hospitalization)
  Sender: Public
  Company Number: None

PATIENT
  Age: 70 Year
  Sex: Female

DRUGS (1)
  1. IBRANCE [Suspect]
     Active Substance: PALBOCICLIB
     Indication: Breast cancer female
     Dosage: OTHER FREQUENCY : 21 DAYS ON AND 7 DAYS OFF;?
     Route: 048

REACTIONS (8)
  - Pruritus [None]
  - Fatigue [None]
  - Decreased appetite [None]
  - Infection [None]
  - Weight decreased [None]
  - Rash [None]
  - Pruritus [None]
  - Therapy interrupted [None]
